FAERS Safety Report 16108365 (Version 2)
Quarter: 2019Q3

REPORT INFORMATION
  Report Type: Spontaneous
  Country: FR (occurrence: FR)
  Receive Date: 20190323
  Receipt Date: 20190813
  Transmission Date: 20191004
  Serious: Yes (Life-Threatening, Other)
  Sender: FDA-Public Use
  Company Number: FR-WHANIN PHARM. CO., LTD.-2019M1027441

PATIENT
  Age: 86 Year
  Sex: Male
  Weight: 73 kg

DRUGS (11)
  1. EDUCTYL [Concomitant]
     Active Substance: POTASSIUM BITARTRATE\SODIUM BICARBONATE
     Indication: PRODUCT USED FOR UNKNOWN INDICATION
  2. XATRAL [Concomitant]
     Active Substance: ALFUZOSIN
     Indication: PRODUCT USED FOR UNKNOWN INDICATION
     Dosage: 4 DOSAGE FORM, QD
     Route: 048
  3. MIRTAZAPINE. [Suspect]
     Active Substance: MIRTAZAPINE
     Indication: PRODUCT USED FOR UNKNOWN INDICATION
     Dosage: 45 MILLIGRAM, QD
     Route: 048
  4. DULCILARMES [Concomitant]
     Indication: PRODUCT USED FOR UNKNOWN INDICATION
     Dosage: 3 GTT, QD
     Route: 047
  5. LOXAPAC                            /00401801/ [Suspect]
     Active Substance: LOXAPINE
     Indication: AGGRESSION
     Dosage: 30 GTT, QD (AVANT LES SOINS)
     Route: 048
  6. ELIQUIS [Concomitant]
     Active Substance: APIXABAN
     Indication: PRODUCT USED FOR UNKNOWN INDICATION
     Dosage: 2 DOSAGE FORM, QD
     Route: 048
  7. CLOZAPINE. [Suspect]
     Active Substance: CLOZAPINE
     Indication: AGGRESSION
     Dosage: UNK
     Route: 048
     Dates: start: 20181127, end: 20190122
  8. NORMACOL                           /06843301/ [Concomitant]
     Active Substance: FRANGULA ALNUS BARK\KARAYA GUM
     Indication: PRODUCT USED FOR UNKNOWN INDICATION
     Route: 048
  9. SERESTA [Suspect]
     Active Substance: OXAZEPAM
     Indication: PRODUCT USED FOR UNKNOWN INDICATION
     Dosage: 20 MILLIGRAM, QD
     Route: 048
  10. IMOVANE [Concomitant]
     Active Substance: ZOPICLONE
     Indication: PRODUCT USED FOR UNKNOWN INDICATION
     Dosage: 1 DOSAGE FORM, QD
     Route: 048
  11. MOVICOL [Concomitant]
     Active Substance: POLYETHYLENE GLYCOL 3350\POTASSIUM CHLORIDE\SODIUM BICARBONATE\SODIUM CHLORIDE
     Indication: PRODUCT USED FOR UNKNOWN INDICATION
     Dosage: 2 DOSAGE FORM, QD
     Route: 048

REACTIONS (3)
  - Syncope [Recovered/Resolved]
  - Malaise [Recovered/Resolved]
  - Circulatory collapse [Recovered/Resolved]

NARRATIVE: CASE EVENT DATE: 20190122
